FAERS Safety Report 25160406 (Version 3)
Quarter: 2025Q2

REPORT INFORMATION
  Report Type: Report from Study
  Country: DE (occurrence: DE)
  Receive Date: 20250404
  Receipt Date: 20250524
  Transmission Date: 20250717
  Serious: Yes (Hospitalization, Other)
  Sender: ABBVIE
  Company Number: DE-ABBVIE-5727815

PATIENT
  Age: 71 Year
  Sex: Female

DRUGS (19)
  1. FOSCARBIDOPA\FOSLEVODOPA [Suspect]
     Active Substance: FOSCARBIDOPA\FOSLEVODOPA
     Indication: Parkinson^s disease
     Route: 058
     Dates: start: 20240415, end: 20240415
  2. FOSCARBIDOPA\FOSLEVODOPA [Suspect]
     Active Substance: FOSCARBIDOPA\FOSLEVODOPA
     Route: 058
  3. FOSCARBIDOPA\FOSLEVODOPA [Suspect]
     Active Substance: FOSCARBIDOPA\FOSLEVODOPA
     Route: 058
  4. FOSCARBIDOPA\FOSLEVODOPA [Suspect]
     Active Substance: FOSCARBIDOPA\FOSLEVODOPA
     Route: 058
  5. FOSCARBIDOPA\FOSLEVODOPA [Suspect]
     Active Substance: FOSCARBIDOPA\FOSLEVODOPA
     Route: 058
  6. FOSCARBIDOPA\FOSLEVODOPA [Suspect]
     Active Substance: FOSCARBIDOPA\FOSLEVODOPA
     Route: 058
  7. FOSCARBIDOPA\FOSLEVODOPA [Suspect]
     Active Substance: FOSCARBIDOPA\FOSLEVODOPA
     Route: 058
  8. FOSCARBIDOPA\FOSLEVODOPA [Suspect]
     Active Substance: FOSCARBIDOPA\FOSLEVODOPA
     Route: 058
  9. FOSCARBIDOPA\FOSLEVODOPA [Suspect]
     Active Substance: FOSCARBIDOPA\FOSLEVODOPA
     Route: 058
  10. FOSCARBIDOPA\FOSLEVODOPA [Suspect]
     Active Substance: FOSCARBIDOPA\FOSLEVODOPA
     Route: 058
     Dates: start: 20240416
  11. FOSCARBIDOPA\FOSLEVODOPA [Suspect]
     Active Substance: FOSCARBIDOPA\FOSLEVODOPA
     Route: 058
  12. RIVASTIGMINE [Concomitant]
     Active Substance: RIVASTIGMINE
     Indication: Product used for unknown indication
     Dosage: PATCH
  13. PANTOPRAZOLE [Concomitant]
     Active Substance: PANTOPRAZOLE
     Indication: Product used for unknown indication
  14. BISOPROLOL [Concomitant]
     Active Substance: BISOPROLOL
     Indication: Product used for unknown indication
  15. TILIDINE [Concomitant]
     Active Substance: TILIDINE
     Indication: Product used for unknown indication
  16. METAMIZOLE [Concomitant]
     Active Substance: METAMIZOLE
     Indication: Product used for unknown indication
  17. QUETIAPINE [Concomitant]
     Active Substance: QUETIAPINE
     Indication: Product used for unknown indication
     Dates: start: 2024
  18. ROTIGOTINE [Concomitant]
     Active Substance: ROTIGOTINE
     Indication: Product used for unknown indication
     Dates: end: 2024
  19. MEROPENEM [Concomitant]
     Active Substance: MEROPENEM
     Indication: Product used for unknown indication
     Dates: start: 20240903

REACTIONS (48)
  - General physical health deterioration [Recovering/Resolving]
  - Hallucination [Recovered/Resolved]
  - On and off phenomenon [Not Recovered/Not Resolved]
  - Dyskinesia [Not Recovered/Not Resolved]
  - Incorrect product administration duration [Recovered/Resolved]
  - Hospitalisation [Recovered/Resolved]
  - Decubitus ulcer [Unknown]
  - Infection [Recovered/Resolved]
  - Mobility decreased [Unknown]
  - Bradykinesia [Unknown]
  - Muscle rigidity [Unknown]
  - Balance disorder [Unknown]
  - Constipation [Unknown]
  - Urinary incontinence [Unknown]
  - Impaired gastric emptying [Unknown]
  - Therapeutic product effect variable [Unknown]
  - Therapeutic response shortened [Unknown]
  - Psychotic disorder [Unknown]
  - Delusion [Unknown]
  - Dementia [Unknown]
  - Urge incontinence [Unknown]
  - Hypertension [Unknown]
  - Mitral valve incompetence [Unknown]
  - Parkinsonism [Unknown]
  - Dysarthria [Unknown]
  - Muscle atrophy [Unknown]
  - Joint contracture [Recovering/Resolving]
  - Urinary tract infection [Not Recovered/Not Resolved]
  - Diarrhoea [Recovered/Resolved]
  - Restlessness [Recovering/Resolving]
  - Chills [Recovering/Resolving]
  - Wound [Recovering/Resolving]
  - Immobile [Unknown]
  - Decubitus ulcer [Recovered/Resolved]
  - Pyrexia [Recovered/Resolved]
  - Disturbance in attention [Unknown]
  - Communication disorder [Unknown]
  - Dysphagia [Unknown]
  - Hallucination, visual [Unknown]
  - Hallucination [Recovering/Resolving]
  - Inflammation [Recovering/Resolving]
  - Leukocyturia [Recovering/Resolving]
  - Escherichia infection [Unknown]
  - Pseudomonas infection [Unknown]
  - Clostridium difficile infection [Unknown]
  - Pain [Recovering/Resolving]
  - Pyrexia [Recovered/Resolved]
  - Wound infection [Recovering/Resolving]

NARRATIVE: CASE EVENT DATE: 20240101
